FAERS Safety Report 9760289 (Version 1)
Quarter: 2013Q4

REPORT INFORMATION
  Report Type: Spontaneous
  Country: US (occurrence: US)
  Receive Date: 20131216
  Receipt Date: 20131216
  Transmission Date: 20140711
  Serious: No
  Sender: FDA-Public Use
  Company Number: US-GILEAD-2010-0028954

PATIENT
  Sex: Female
  Weight: 113.4 kg

DRUGS (23)
  1. LETAIRIS [Suspect]
     Indication: PULMONARY ARTERIAL HYPERTENSION
     Route: 048
     Dates: start: 20100115
  2. LASIX [Concomitant]
  3. CARDIZEM CD [Concomitant]
  4. ZOLPIDEM TARTRATE [Concomitant]
  5. HYDROCODONE-APAP [Concomitant]
  6. PRAVACHOL [Concomitant]
  7. LEVOTHYROXINE [Concomitant]
  8. XANAX [Concomitant]
  9. NEURONTIN [Concomitant]
  10. DIOVAN HCT [Concomitant]
  11. GLUCOPHAGE [Concomitant]
  12. ALLEGRA [Concomitant]
  13. PREVACID [Concomitant]
  14. POTASSIUM CHLORIDE [Concomitant]
  15. PROBIOTIC FORMULA [Concomitant]
  16. DAILY MULTIVITAMIN [Concomitant]
  17. VITAMIN C [Concomitant]
  18. VITAMIN D [Concomitant]
  19. ACAI BERRY SOFTGEL [Concomitant]
  20. PLAVIX [Concomitant]
  21. FISH OIL [Concomitant]
  22. L-GLUTATHIONE [Concomitant]
  23. CALCIUM MAGNESIUM [Concomitant]

REACTIONS (2)
  - Pruritus [Unknown]
  - Chromaturia [Unknown]
